FAERS Safety Report 7943144-X (Version None)
Quarter: 2011Q4

REPORT INFORMATION
  Report Type: 
  Country: None (occurrence: None)
  Receive Date: 20111128
  Receipt Date: 20111117
  Transmission Date: 20120403
  Serious: Yes (Hospitalization, Congenital Anomaly, Other)
  Sender: FDA-Public Use
  Company Number: PHHY2011DE102371

PATIENT
  Sex: Female
  Weight: 3.3 kg

DRUGS (3)
  1. BROMOCRIPTINE MESYLATE [Suspect]
     Dosage: MATERNAL DOSE 2.5 MG DAILY FOR PROLACTINOMA, 11-30 GESTATIONAL WEEK
     Route: 064
     Dates: end: 20110502
  2. FOLIC ACID [Concomitant]
     Dosage: MATERNAL DOSE 0.4 MG/DAY,6-16.1,GESTATIONAL WEEK
     Route: 064
  3. ACETAMINOPHEN [Concomitant]
     Dosage: MATERNAL DOSE 500 MG DAILY, ONCE BETWEEN GESTATIONAL WEEK 10 AND 11
     Route: 064

REACTIONS (7)
  - ATRIAL SEPTAL DEFECT [None]
  - FOETAL EXPOSURE DURING PREGNANCY [None]
  - ULTRASOUND KIDNEY ABNORMAL [None]
  - RHABDOMYOMA [None]
  - NEONATAL RESPIRATORY DEPRESSION [None]
  - MYOCLONUS [None]
  - PREMATURE BABY [None]
